FAERS Safety Report 20289694 (Version 1)
Quarter: 2022Q1

REPORT INFORMATION
  Report Type: Spontaneous
  Country: US (occurrence: None)
  Receive Date: 20220103
  Receipt Date: 20220103
  Transmission Date: 20220423
  Serious: No
  Sender: FDA-Public Use
  Company Number: None

PATIENT
  Age: 54 Year
  Sex: Female
  Weight: 65.25 kg

DRUGS (1)
  1. CANNABIDIOL\HERBALS [Suspect]
     Active Substance: CANNABIDIOL\HERBALS
     Indication: Myalgia
     Dosage: FREQUENCY : AS NEEDED;?
     Route: 061
     Dates: start: 20211020, end: 20220102

REACTIONS (3)
  - Rash pruritic [None]
  - Pain [None]
  - Product quality issue [None]

NARRATIVE: CASE EVENT DATE: 20211230
